FAERS Safety Report 22675735 (Version 6)
Quarter: 2024Q2

REPORT INFORMATION
  Report Type: Report from Study
  Country: US (occurrence: US)
  Receive Date: 20230706
  Receipt Date: 20240426
  Transmission Date: 20240716
  Serious: Yes (Other)
  Sender: FDA-Public Use
  Company Number: US-BAUSCH-BL-2023-006201

PATIENT
  Age: 45 Year
  Sex: Female

DRUGS (2)
  1. SILIQ [Suspect]
     Active Substance: BRODALUMAB
     Indication: Psoriasis
     Dosage: INJECT 210MG/1.5ML SUBCUTANEOUSLY ON WEEK 0,1 AND 2 AS DIRECTED.
     Route: 058
     Dates: start: 202303, end: 202311
  2. SILIQ [Suspect]
     Active Substance: BRODALUMAB
     Dosage: INJECT 210MG/1.5ML SUBCUTANEOUSLY ON WEEK 0,1 AND 2 AS DIRECTED.
     Route: 058
     Dates: end: 202404

REACTIONS (13)
  - Ventricular tachycardia [Unknown]
  - Therapeutic procedure [Unknown]
  - Cellulitis [Unknown]
  - Depressed mood [Unknown]
  - Psoriasis [Unknown]
  - Folliculitis [Unknown]
  - Arthralgia [Not Recovered/Not Resolved]
  - Myalgia [Unknown]
  - Fatigue [Unknown]
  - Therapy interrupted [Unknown]
  - Circumstance or information capable of leading to medication error [Unknown]
  - Intentional product use issue [Unknown]
  - Product dose omission issue [Unknown]

NARRATIVE: CASE EVENT DATE: 20230101
